FAERS Safety Report 23445554 (Version 1)
Quarter: 2024Q1

REPORT INFORMATION
  Report Type: Report from Study
  Country: TW (occurrence: TW)
  Receive Date: 20240126
  Receipt Date: 20240126
  Transmission Date: 20240410
  Serious: Yes (Hospitalization, Other)
  Sender: FDA-Public Use
  Company Number: TW-ABBVIE-5597574

PATIENT
  Sex: Male
  Weight: 53 kg

DRUGS (3)
  1. HUMIRA [Suspect]
     Active Substance: ADALIMUMAB
     Indication: Crohn^s disease
     Route: 058
     Dates: start: 20231017, end: 20240111
  2. IMURAN [Concomitant]
     Active Substance: AZATHIOPRINE
     Indication: Crohn^s disease
     Dosage: 50MG QD
     Dates: start: 20181005
  3. ASACOL [Concomitant]
     Active Substance: MESALAMINE
     Indication: Crohn^s disease
     Dosage: 800MG TID
     Dates: start: 20181005

REACTIONS (1)
  - Ileal stenosis [Unknown]
